FAERS Safety Report 6103101-5 (Version None)
Quarter: 2009Q1

REPORT INFORMATION
  Report Type: 
  Country: None (occurrence: None)
  Receive Date: 20090305
  Receipt Date: 20090303
  Transmission Date: 20090719
  Serious: Yes (Other)
  Sender: FDA-Public Use
  Company Number: US-BRISTOL-MYERS SQUIBB COMPANY-14517122

PATIENT
  Age: 57 Year
  Sex: Male
  Weight: 66 kg

DRUGS (3)
  1. ERBITUX [Suspect]
     Indication: HEAD AND NECK CANCER
     Dosage: 250MG/M2 WEEKLY X 7. LAST DOSE GIVEN ON 02FEB09(475MG).
     Dates: start: 20090106, end: 20090106
  2. CISPLATIN [Suspect]
     Indication: HEAD AND NECK CANCER
     Dosage: STARTED ON 06-JAN-2009:100MG/M2 ON DAY1,WEEK1 AND DAY22,WEEK4;LAST DOSE ON 02FEB09(190MG).
     Route: 042
     Dates: start: 20090106, end: 20090106
  3. RADIATION THERAPY [Suspect]
     Indication: HEAD AND NECK CANCER
     Dosage: 6600CGY ON 19FEB09 1 DOSAGE FORM:7000 CGY TILL 20FEB09 NO OF FRACTIONS:35 NO OF ELAPSED DAYS:39
     Dates: start: 20090106, end: 20090106

REACTIONS (6)
  - FATIGUE [None]
  - HYPERGLYCAEMIA [None]
  - HYPOALBUMINAEMIA [None]
  - HYPOMAGNESAEMIA [None]
  - HYPONATRAEMIA [None]
  - WEIGHT DECREASED [None]
